FAERS Safety Report 25031644 (Version 1)
Quarter: 2025Q1

REPORT INFORMATION
  Report Type: Spontaneous
  Country: US (occurrence: US)
  Receive Date: 20250303
  Receipt Date: 20250303
  Transmission Date: 20250409
  Serious: No
  Sender: COLGATE
  Company Number: US-COLGATE PALMOLIVE COMPANY-20240300582

PATIENT
  Sex: Female

DRUGS (1)
  1. PERIOGARD [Suspect]
     Active Substance: CHLORHEXIDINE GLUCONATE

REACTIONS (1)
  - Tooth discolouration [Unknown]
